FAERS Safety Report 6828434-6 (Version None)
Quarter: 2010Q3

REPORT INFORMATION
  Report Type: 
  Country: None (occurrence: None)
  Receive Date: 20100708
  Receipt Date: 20100708
  Transmission Date: 20110219
  Serious: Yes (Hospitalization)
  Sender: FDA-Public Use
  Company Number: None

PATIENT
  Age: 23 Year
  Sex: Female
  Weight: 81.6475 kg

DRUGS (1)
  1. OCELLA DRSP 3 MG, EE .03 MG BAYER HEALTHCARE PHARMACEUTICALS [Suspect]
     Indication: MENSTRUAL CYCLE MANAGEMENT
     Dosage: ONE PILL ONCE A DAY PO
     Route: 048
     Dates: start: 20090124, end: 20100403

REACTIONS (1)
  - THROMBOSIS [None]
